FAERS Safety Report 5369771-4 (Version None)
Quarter: 2007Q2

REPORT INFORMATION
  Report Type: 
  Country: None (occurrence: None)
  Receive Date: 20070621
  Receipt Date: 20070604
  Transmission Date: 20071010
  Serious: Yes (Other)
  Sender: FDA-Public Use
  Company Number: 3294

PATIENT
  Age: 23 Year
  Sex: Female

DRUGS (2)
  1. AMNESTEEM [Suspect]
     Indication: ACNE
     Dosage: 40 MG QD PO
     Route: 048
     Dates: start: 20060306, end: 20060901
  2. BIRTH CONTROL PILLS [Concomitant]

REACTIONS (4)
  - ABORTION INDUCED [None]
  - DRUG EXPOSURE DURING PREGNANCY [None]
  - TREATMENT NONCOMPLIANCE [None]
  - UNINTENDED PREGNANCY [None]
